FAERS Safety Report 18621768 (Version 1)
Quarter: 2020Q4

REPORT INFORMATION
  Report Type: Other
  Country: US (occurrence: US)
  Receive Date: 20201215
  Receipt Date: 20201215
  Transmission Date: 20210114
  Serious: Yes (Other)
  Sender: FDA-Public Use
  Company Number: US-INTERCEPT-PM2020002479

PATIENT
  Sex: Female

DRUGS (15)
  1. URSODIOL. [Concomitant]
     Active Substance: URSODIOL
  2. PROTONIX [Concomitant]
     Active Substance: PANTOPRAZOLE SODIUM
  3. DIPHENHYDRAMINE HCL [Concomitant]
     Active Substance: DIPHENHYDRAMINE HYDROCHLORIDE
  4. CALCIUM+D3 [Concomitant]
     Active Substance: CALCIUM\CHOLECALCIFEROL
  5. METRONIDAZOLE. [Concomitant]
     Active Substance: METRONIDAZOLE
  6. LISINOPRIL. [Concomitant]
     Active Substance: LISINOPRIL
  7. LEVOTHYROXINE SODIUM. [Concomitant]
     Active Substance: LEVOTHYROXINE SODIUM
  8. TYLENOL EXTRA STRENGTH [Concomitant]
     Active Substance: ACETAMINOPHEN
  9. OCALIVA [Suspect]
     Active Substance: OBETICHOLIC ACID
     Indication: PRIMARY BILIARY CHOLANGITIS
     Dosage: 5 MILLIGRAM, QD
     Route: 048
     Dates: start: 20200707
  10. VITAMINS NOS [Concomitant]
     Active Substance: VITAMINS
  11. MAGNESIUM [Concomitant]
     Active Substance: MAGNESIUM
  12. HYDROCORTISONE. [Concomitant]
     Active Substance: HYDROCORTISONE
  13. NEXIUM I.V. [Concomitant]
     Active Substance: ESOMEPRAZOLE SODIUM
  14. ALEVE [Concomitant]
     Active Substance: NAPROXEN SODIUM
  15. MIRALAX [Concomitant]
     Active Substance: POLYETHYLENE GLYCOL 3350

REACTIONS (3)
  - Visual impairment [Not Recovered/Not Resolved]
  - Halo vision [Not Recovered/Not Resolved]
  - Cataract operation [Recovered/Resolved]
